FAERS Safety Report 6287594-9 (Version None)
Quarter: 2009Q3

REPORT INFORMATION
  Report Type: 
  Country: None (occurrence: None)
  Receive Date: 20090727
  Receipt Date: 20090713
  Transmission Date: 20100115
  Serious: Yes (Hospitalization)
  Sender: FDA-Public Use
  Company Number: 09-074

PATIENT
  Age: 30 Year
  Sex: Female

DRUGS (6)
  1. CEFTRIAXONE [Suspect]
     Indication: LYMPHADENOPATHY
  2. CEFTRIAXONE [Suspect]
     Indication: MALAISE
  3. CEFTRIAXONE [Suspect]
     Indication: PYREXIA
  4. CEFTRIAXONE [Suspect]
     Indication: RASH
  5. PHENOBARBITAL [Suspect]
     Indication: EPILEPSY
  6. VALPROATE SODIUM [Concomitant]

REACTIONS (4)
  - DRUG HYPERSENSITIVITY [None]
  - DRUG RASH WITH EOSINOPHILIA AND SYSTEMIC SYMPTOMS [None]
  - GENERAL PHYSICAL HEALTH DETERIORATION [None]
  - LYMPHOCYTE TRANSFORMATION TEST POSITIVE [None]
